FAERS Safety Report 9353847 (Version 1)
Quarter: 2013Q2

REPORT INFORMATION
  Report Type: Spontaneous
  Country: US (occurrence: US)
  Receive Date: 20130618
  Receipt Date: 20130618
  Transmission Date: 20140414
  Serious: Yes (Other)
  Sender: FDA-Public Use
  Company Number: US-BAYER-2013-072576

PATIENT
  Sex: Female

DRUGS (1)
  1. CAMPHO-PHENIQUE ANTISEPTIC LIQUID [Suspect]
     Indication: MOUTH INJURY
     Dosage: UNK
     Route: 061
     Dates: start: 201306

REACTIONS (7)
  - Fungal infection [Recovering/Resolving]
  - Mouth injury [Not Recovered/Not Resolved]
  - Ear pain [Recovering/Resolving]
  - Ear discomfort [Recovering/Resolving]
  - Confusional state [Recovering/Resolving]
  - Balance disorder [Recovering/Resolving]
  - Accidental exposure to product [None]
